FAERS Safety Report 10024500 (Version 1)
Quarter: 2014Q1

REPORT INFORMATION
  Report Type: Spontaneous
  Country: US (occurrence: US)
  Receive Date: 20140320
  Receipt Date: 20140320
  Transmission Date: 20141002
  Serious: No
  Sender: FDA-Public Use
  Company Number: US-009507513-1403USA007060

PATIENT
  Sex: Female

DRUGS (3)
  1. SINEMET CR [Suspect]
     Indication: PARKINSON^S DISEASE
     Dosage: 25/100 MG TABLET, Q2H
     Route: 048
     Dates: end: 20140109
  2. SINEMET [Suspect]
     Dosage: 1 DF EVERY 2 HOURS
     Route: 048
  3. SINEMET [Suspect]
     Dosage: 1 DF EVERY 2 HOURS
     Route: 048
     Dates: start: 20140109

REACTIONS (3)
  - Tremor [Recovered/Resolved]
  - Dehydration [Recovered/Resolved]
  - Drug dispensing error [Unknown]
